FAERS Safety Report 18487956 (Version 1)
Quarter: 2020Q4

REPORT INFORMATION
  Report Type: Spontaneous
  Country: US (occurrence: US)
  Receive Date: 20201111
  Receipt Date: 20201111
  Transmission Date: 20210114
  Serious: No
  Sender: FDA-Public Use
  Company Number: US-AUROBINDO-AUR-APL-2020-044757

PATIENT
  Age: 2 Year
  Sex: Female

DRUGS (2)
  1. FLUCONAZOLE FOR ORAL SUSPENSION 40 MG/ML [Suspect]
     Active Substance: FLUCONAZOLE
     Indication: PRODUCT USED FOR UNKNOWN INDICATION
     Dosage: 2 MILLILITER, DAILY, FOR 6 WEEKS (1X/DAY)
     Route: 048
     Dates: start: 20200725
  2. INSULIN [Concomitant]
     Active Substance: INSULIN NOS
     Indication: PRODUCT USED FOR UNKNOWN INDICATION
     Dosage: UNK
     Route: 065

REACTIONS (3)
  - Product preparation error [Unknown]
  - Product use issue [Unknown]
  - Product dispensing error [Unknown]
